FAERS Safety Report 4360508-4 (Version None)
Quarter: 2004Q2

REPORT INFORMATION
  Report Type: 
  Country: None (occurrence: None)
  Receive Date: 20040519
  Receipt Date: 20020319
  Transmission Date: 20050107
  Serious: Yes (Hospitalization)
  Sender: FDA-Public Use
  Company Number: US-MERCK-0203USA02020

PATIENT
  Age: 81 Year
  Sex: Male

DRUGS (1)
  1. VIOXX [Suspect]
     Route: 048

REACTIONS (9)
  - ARTHROPATHY [None]
  - BLADDER CANCER RECURRENT [None]
  - BLOOD PRESSURE ABNORMAL [None]
  - CATARACT [None]
  - CHRONIC OBSTRUCTIVE AIRWAYS DISEASE [None]
  - GASTRIC DISORDER [None]
  - HEART RATE IRREGULAR [None]
  - INJURY [None]
  - PALPITATIONS [None]
